FAERS Safety Report 16255852 (Version 1)
Quarter: 2019Q2

REPORT INFORMATION
  Report Type: Spontaneous
  Country: US (occurrence: US)
  Receive Date: 20190430
  Receipt Date: 20190430
  Transmission Date: 20190711
  Serious: No
  Sender: FDA-Public Use
  Company Number: US-PFIZER INC-2016586268

PATIENT
  Age: 42 Year
  Sex: Female
  Weight: 104 kg

DRUGS (1)
  1. SKELAXIN [Suspect]
     Active Substance: METAXALONE
     Indication: TEMPOROMANDIBULAR JOINT SYNDROME
     Dosage: 800 MG, 4X/DAY
     Dates: start: 201104

REACTIONS (2)
  - Muscle tightness [Unknown]
  - Pain [Unknown]
